FAERS Safety Report 5612351-3 (Version None)
Quarter: 2008Q1

REPORT INFORMATION
  Report Type: 
  Country: None (occurrence: None)
  Receive Date: 20080204
  Receipt Date: 20080123
  Transmission Date: 20080703
  Serious: Yes (Other)
  Sender: FDA-Public Use
  Company Number: DE-SANOFI-SYNTHELABO-A01200800604

PATIENT
  Sex: Female
  Weight: 64 kg

DRUGS (1)
  1. ISCOVER [Suspect]
     Indication: TRANSIENT ISCHAEMIC ATTACK
     Route: 048
     Dates: start: 20040601

REACTIONS (5)
  - ARTHRALGIA [None]
  - EPICONDYLITIS [None]
  - MYOSITIS [None]
  - PERIARTHRITIS [None]
  - TENDONITIS [None]
